FAERS Safety Report 6765315-0 (Version None)
Quarter: 2010Q2

REPORT INFORMATION
  Report Type: 
  Country: None (occurrence: None)
  Receive Date: 20100611
  Receipt Date: 20100608
  Transmission Date: 20101027
  Serious: Yes (Other)
  Sender: FDA-Public Use
  Company Number: JP-BAYER-201012629BYL

PATIENT
  Age: 76 Year
  Sex: Male
  Weight: 65 kg

DRUGS (10)
  1. NEXAVAR [Suspect]
     Indication: RENAL CELL CARCINOMA
     Dosage: TOTAL DAILY DOSE: 400 MG  UNIT DOSE: 200 MG
     Route: 048
     Dates: start: 20100412, end: 20100519
  2. NEXAVAR [Suspect]
     Dosage: TOTAL DAILY DOSE: 400 MG  UNIT DOSE: 200 MG
     Route: 048
     Dates: start: 20100520
  3. RIBALL [Concomitant]
     Indication: GOUT
     Dosage: UNIT DOSE: 100 MG
     Route: 048
  4. ARTIST [Concomitant]
     Indication: CARDIAC FAILURE
     Dosage: UNIT DOSE: 2.5 MG
     Route: 048
  5. COTRIM [Concomitant]
     Indication: INFECTION PROPHYLAXIS
     Route: 048
     Dates: start: 20100310
  6. WARFARIN [Concomitant]
     Indication: ATRIAL FIBRILLATION
     Dosage: UNIT DOSE: 1 MG
     Route: 048
  7. KAYEXALATE [Concomitant]
     Indication: HYPERKALAEMIA
     Route: 048
  8. TAMSULOSIN HCL [Concomitant]
     Indication: BENIGN PROSTATIC HYPERPLASIA
     Dosage: UNIT DOSE: 0.2 MG
     Route: 048
  9. DETRUSITOL [Concomitant]
     Indication: HYPERTONIC BLADDER
     Dosage: UNIT DOSE: 4 MG
     Route: 048
  10. PYDOXAL [Concomitant]
     Indication: PROPHYLAXIS
     Dosage: UNIT DOSE: 10 MG
     Route: 048

REACTIONS (2)
  - BONE MARROW FAILURE [None]
  - PANCYTOPENIA [None]
